FAERS Safety Report 6114345-0 (Version None)
Quarter: 2009Q1

REPORT INFORMATION
  Report Type: 
  Country: None (occurrence: None)
  Receive Date: 20090312
  Receipt Date: 20090303
  Transmission Date: 20090719
  Serious: No
  Sender: FDA-Public Use
  Company Number: US-ABBOTT-09P-163-0560984-00

PATIENT
  Sex: Male
  Weight: 90.8 kg

DRUGS (8)
  1. DEPAKOTE [Suspect]
     Indication: BIPOLAR DISORDER
     Route: 048
     Dates: start: 19870101
  2. DEPAKOTE [Suspect]
     Route: 048
     Dates: start: 19870101
  3. EFFEXOR [Concomitant]
     Indication: DRUG USE FOR UNKNOWN INDICATION
  4. LOXAPINE [Concomitant]
     Indication: DRUG USE FOR UNKNOWN INDICATION
  5. LAMICTAL [Concomitant]
     Indication: DRUG USE FOR UNKNOWN INDICATION
  6. INDURAL [Concomitant]
     Indication: DRUG USE FOR UNKNOWN INDICATION
  7. PEPCID [Concomitant]
     Indication: DRUG USE FOR UNKNOWN INDICATION
  8. SYNTHROID [Concomitant]
     Indication: DRUG USE FOR UNKNOWN INDICATION

REACTIONS (2)
  - SOMNOLENCE [None]
  - TREMOR [None]
